FAERS Safety Report 15927040 (Version 2)
Quarter: 2019Q1

REPORT INFORMATION
  Report Type: Spontaneous
  Country: US (occurrence: US)
  Receive Date: 20190205
  Receipt Date: 20190219
  Transmission Date: 20190417
  Serious: No
  Sender: FDA-Public Use
  Company Number: US-ALLERGAN-1850964US

PATIENT
  Age: 56 Year
  Sex: Female

DRUGS (6)
  1. BOTOX COSMETIC [Suspect]
     Active Substance: ONABOTULINUMTOXINA
     Indication: SKIN WRINKLING
     Dosage: 10 UNITS, SINGLE
     Route: 030
     Dates: start: 20181101, end: 20181101
  2. BOTOX COSMETIC [Suspect]
     Active Substance: ONABOTULINUMTOXINA
     Indication: SKIN WRINKLING
  3. BOTOX COSMETIC [Suspect]
     Active Substance: ONABOTULINUMTOXINA
     Indication: SKIN WRINKLING
     Dosage: 6 UNITS, SINGLE
     Route: 030
  4. BOTOX COSMETIC [Suspect]
     Active Substance: ONABOTULINUMTOXINA
     Indication: SKIN WRINKLING
     Dosage: 20 UNITS, SINGLE
     Route: 030
     Dates: start: 20180829, end: 20180829
  5. JUVEDERM VOLUMA XC [Concomitant]
     Active Substance: HYALURONIC ACID\LIDOCAINE HYDROCHLORIDE
     Indication: SKIN WRINKLING
     Dosage: UNK
     Route: 065
  6. BOTOX COSMETIC [Suspect]
     Active Substance: ONABOTULINUMTOXINA
     Indication: SKIN WRINKLING
     Dosage: ACTUAL: CROWS 24 UNITS, FOREHEAD (NEAR THE HAIR LINE) 6 UNITS, UNDER EYES 5 UNITS AND CHIN 6 UNITS
     Route: 030
     Dates: start: 20180913, end: 20180913

REACTIONS (18)
  - Oral discomfort [Not Recovered/Not Resolved]
  - Injection site bruising [Recovered/Resolved]
  - Drug ineffective [Unknown]
  - Muscle tightness [Recovering/Resolving]
  - Off label use [Unknown]
  - Wrong technique in product usage process [Unknown]
  - Feeling abnormal [Recovered/Resolved]
  - Dyskinesia [Not Recovered/Not Resolved]
  - Facial paresis [Not Recovered/Not Resolved]
  - Speech disorder [Not Recovered/Not Resolved]
  - Malaise [Not Recovered/Not Resolved]
  - Injection site pain [Unknown]
  - Injection site haemorrhage [Unknown]
  - Migraine [Recovered/Resolved]
  - Facial paralysis [Recovering/Resolving]
  - General physical condition abnormal [Not Recovered/Not Resolved]
  - Nausea [Recovered/Resolved]
  - Injection site reaction [Not Recovered/Not Resolved]

NARRATIVE: CASE EVENT DATE: 20180829
